FAERS Safety Report 5880369-1 (Version None)
Quarter: 2008Q3

REPORT INFORMATION
  Report Type: 
  Country: None (occurrence: None)
  Receive Date: 20080912
  Receipt Date: 20080703
  Transmission Date: 20090109
  Serious: No
  Sender: FDA-Public Use
  Company Number: US-ABBOTT-07P-163-0373768-00

PATIENT
  Sex: Female
  Weight: 69.462 kg

DRUGS (4)
  1. HUMIRA [Suspect]
     Indication: CROHN'S DISEASE
     Dosage: CROHN'S LOADING DOSE
     Route: 058
     Dates: start: 20070605, end: 20080618
  2. HUMIRA [Suspect]
     Route: 058
     Dates: start: 20080618
  3. MESALAMINE [Concomitant]
     Indication: CROHN'S DISEASE
     Dosage: 8 PILLS, DAILY
     Route: 048
     Dates: start: 20060101
  4. RIFAXIMIN [Concomitant]
     Indication: CROHN'S DISEASE
     Dosage: 2 PILLS, 3 TIMES DAILY
     Route: 048
     Dates: start: 20060101

REACTIONS (7)
  - ASTHENIA [None]
  - CROHN'S DISEASE [None]
  - DIARRHOEA [None]
  - DRUG INEFFECTIVE [None]
  - FATIGUE [None]
  - GASTROENTERITIS VIRAL [None]
  - NAUSEA [None]
